FAERS Safety Report 5008731-X (Version None)
Quarter: 2006Q2

REPORT INFORMATION
  Report Type: 
  Country: None (occurrence: None)
  Receive Date: 20060523
  Receipt Date: 20060511
  Transmission Date: 20061013
  Serious: Yes (Hospitalization)
  Sender: FDA-Public Use
  Company Number: RU-GLAXOSMITHKLINE-B0423683A

PATIENT
  Age: 9 Month
  Sex: Female

DRUGS (1)
  1. PANADOL BABY [Suspect]
     Indication: PYREXIA
     Route: 048
     Dates: start: 20060504, end: 20060504

REACTIONS (1)
  - RASH [None]
